FAERS Safety Report 6470832-7 (Version None)
Quarter: 2009Q4

REPORT INFORMATION
  Report Type: 
  Country: None (occurrence: None)
  Receive Date: 20091125
  Receipt Date: 20090716
  Transmission Date: 20100525
  Serious: Yes (Other)
  Sender: FDA-Public Use
  Company Number: 2009225450

PATIENT
  Sex: Female
  Weight: 111.1 kg

DRUGS (14)
  1. RELPAX [Suspect]
     Indication: MIGRAINE
     Dosage: 20 MG, AS NEEDED, ORAL
     Route: 048
     Dates: start: 20030101
  2. METFORMIN HCL [Suspect]
     Indication: BLOOD TESTOSTERONE
     Dosage: SEE IMAGE
     Route: 048
     Dates: start: 20010101
  3. METFORMIN HCL [Suspect]
     Indication: BLOOD TESTOSTERONE
     Dosage: SEE IMAGE
     Route: 048
     Dates: start: 20040101
  4. METFORMIN HCL [Suspect]
     Indication: BLOOD TESTOSTERONE
     Dosage: SEE IMAGE
     Route: 048
     Dates: start: 20040101
  5. WELLBUTRIN XL [Suspect]
     Indication: DEPRESSION
     Dosage: 150 MG, 1X/DAY, ORAL
     Route: 048
     Dates: start: 20040101
  6. (ESTRADIOL) [Suspect]
     Indication: HYSTERECTOMY
     Dosage: 2 MG, 2X/DAY, ORAL
     Route: 048
     Dates: start: 20060101
  7. DICYCLOMINE [Suspect]
     Indication: DYSPEPSIA
     Dosage: 10 MG, 4X/DAY, ORAL
     Route: 048
     Dates: start: 20070101
  8. PREVACID [Suspect]
     Indication: DYSPEPSIA
     Dosage: 30 MG, 2X/DAY, ORAL
     Route: 048
     Dates: start: 20030101
  9. BUPROPION HCL [Suspect]
     Indication: SEASONAL AFFECTIVE DISORDER
     Dosage: SEE IMAGE
     Route: 048
     Dates: start: 20010101
  10. BUPROPION HCL [Suspect]
     Indication: SEASONAL AFFECTIVE DISORDER
     Dosage: SEE IMAGE
     Route: 048
     Dates: start: 20070101
  11. BUPROPION HCL [Suspect]
     Indication: SEASONAL AFFECTIVE DISORDER
     Dosage: SEE IMAGE
     Route: 048
     Dates: start: 20080101
  12. ADVAIR DISKUS 100/50 [Suspect]
     Indication: BRONCHITIS
     Dosage: ^250/25 MG^, 1 PUFF TWICE DAILY, RESPIRATORY (INHALATION)
     Dates: start: 20090201
  13. XOPENEX [Concomitant]
  14. CARAFATE [Concomitant]

REACTIONS (5)
  - BLINDNESS TRANSIENT [None]
  - DEAFNESS TRANSITORY [None]
  - HYPERACUSIS [None]
  - LOSS OF CONSCIOUSNESS [None]
  - SWELLING FACE [None]
